FAERS Safety Report 13946059 (Version 1)
Quarter: 2017Q3

REPORT INFORMATION
  Report Type: Spontaneous
  Country: US (occurrence: US)
  Receive Date: 20170907
  Receipt Date: 20170907
  Transmission Date: 20171128
  Serious: Yes (Other)
  Sender: FDA-Public Use
  Company Number: US-PFIZER INC-2017386239

PATIENT

DRUGS (2)
  1. VIAGRA [Suspect]
     Active Substance: SILDENAFIL CITRATE
     Dosage: UNK
     Route: 048
     Dates: start: 201509, end: 201612
  2. CIALIS [Suspect]
     Active Substance: TADALAFIL
     Dosage: UNK
     Route: 048
     Dates: start: 201210

REACTIONS (1)
  - Malignant melanoma [Unknown]

NARRATIVE: CASE EVENT DATE: 20161209
